FAERS Safety Report 8528598-2 (Version None)
Quarter: 2012Q3

REPORT INFORMATION
  Report Type: 
  Country: None (occurrence: None)
  Receive Date: 20120723
  Receipt Date: 20120712
  Transmission Date: 20120928
  Serious: Yes (Hospitalization)
  Sender: FDA-Public Use
  Company Number: DE-BIOGENIDEC-2012BI025091

PATIENT
  Age: 50 Year
  Sex: Female
  Weight: 56 kg

DRUGS (3)
  1. IBUPROFEN [Concomitant]
     Indication: SURGERY
     Dates: start: 20120703, end: 20120708
  2. IBUPROFEN [Concomitant]
     Dates: start: 20120709
  3. AVONEX [Suspect]
     Indication: MULTIPLE SCLEROSIS
     Route: 030
     Dates: start: 20110101

REACTIONS (3)
  - GAIT DISTURBANCE [None]
  - ARTHROPATHY [None]
  - BALANCE DISORDER [None]
